FAERS Safety Report 20738502 (Version 1)
Quarter: 2022Q2

REPORT INFORMATION
  Report Type: Spontaneous
  Country: TR (occurrence: TR)
  Receive Date: 20220422
  Receipt Date: 20220422
  Transmission Date: 20220721
  Serious: Yes (Other)
  Sender: FDA-Public Use
  Company Number: TR-MLMSERVICE-20220413-3497063-1

PATIENT
  Age: 48 Year
  Sex: Male

DRUGS (1)
  1. DEXAMETHASONE [Suspect]
     Active Substance: DEXAMETHASONE
     Indication: Pharyngeal exudate
     Dosage: SINGLE DOSE OF DEXAMETHASONE
     Route: 030

REACTIONS (3)
  - Dysmetria [Unknown]
  - Ataxia [Unknown]
  - Dysarthria [Not Recovered/Not Resolved]
